FAERS Safety Report 7794629-0 (Version None)
Quarter: 2011Q4

REPORT INFORMATION
  Report Type: 
  Country: None (occurrence: None)
  Receive Date: 20111003
  Receipt Date: 20111003
  Transmission Date: 20120403
  Serious: No
  Sender: FDA-Public Use
  Company Number: None

PATIENT
  Sex: Female
  Weight: 74.5 kg

DRUGS (2)
  1. IFOSFAMIDE [Suspect]
     Dosage: 8.88 G
  2. TAXOL [Suspect]
     Dosage: 324 MG

REACTIONS (1)
  - NEUTROPENIA [None]
